FAERS Safety Report 7680664-X (Version None)
Quarter: 2011Q3

REPORT INFORMATION
  Report Type: 
  Country: None (occurrence: None)
  Receive Date: 20110812
  Receipt Date: 20110808
  Transmission Date: 20111222
  Serious: Yes (Hospitalization, Other)
  Sender: FDA-Public Use
  Company Number: AU-PFIZER INC-2011163763

PATIENT
  Age: 24 Year
  Sex: Female

DRUGS (4)
  1. YAZ [Concomitant]
     Indication: CONTRACEPTION
     Dosage: UNK
     Route: 048
  2. EDRONAX [Concomitant]
     Indication: DEPRESSION
     Dosage: 4 MG, UNK
  3. CYMBALTA [Concomitant]
     Indication: DEPRESSION
     Dosage: 90 MG, DAILY
     Route: 048
  4. VARENICLINE TARTRATE [Suspect]
     Indication: SMOKING CESSATION THERAPY
     Dosage: 1 MG, 2X/DAY
     Route: 048
     Dates: end: 20110711

REACTIONS (4)
  - SUICIDE ATTEMPT [None]
  - MENTAL DISORDER [None]
  - PHYSICAL ASSAULT [None]
  - FEELING ABNORMAL [None]
